FAERS Safety Report 4580286-3 (Version None)
Quarter: 2005Q1

REPORT INFORMATION
  Report Type: 
  Country: None (occurrence: None)
  Receive Date: 20050127
  Receipt Date: 20040908
  Transmission Date: 20050727
  Serious: No
  Sender: FDA-Public Use
  Company Number: USA040157086

PATIENT
  Age: 32 Year
  Sex: Female
  Weight: 95 kg

DRUGS (4)
  1. STRATTERA [Suspect]
     Indication: ATTENTION DEFICIT/HYPERACTIVITY DISORDER
     Dosage: 80 MG/1 DAY
     Dates: start: 20031201
  2. BACLOFEN [Concomitant]
  3. ZOLOFT [Concomitant]
  4. NEURONTIN [Concomitant]

REACTIONS (2)
  - BLEPHAROSPASM [None]
  - PSYCHOMOTOR HYPERACTIVITY [None]
